FAERS Safety Report 14401275 (Version 1)
Quarter: 2018Q1

REPORT INFORMATION
  Report Type: Spontaneous
  Country: US (occurrence: US)
  Receive Date: 20180114
  Receipt Date: 20180114
  Transmission Date: 20180509
  Serious: No
  Sender: FDA-Public Use
  Company Number: None

PATIENT
  Age: 52 Year
  Sex: Female

DRUGS (1)
  1. CAPECITABINE 500MG TABLETS WEST-WARD PHARMACEUTICALS CORP [Suspect]
     Active Substance: CAPECITABINE
     Indication: NEOPLASM MALIGNANT
     Dosage: 4 TABLETS AM 3 TABLETS PM. 14 DAYS ON, 7 DAYS OFF. BY MOUTH
     Route: 048
     Dates: start: 20171103

REACTIONS (3)
  - Pain in extremity [None]
  - Balance disorder [None]
  - Amnesia [None]

NARRATIVE: CASE EVENT DATE: 20180112
